FAERS Safety Report 5912526-X (Version None)
Quarter: 2008Q4

REPORT INFORMATION
  Report Type: 
  Country: None (occurrence: None)
  Receive Date: 20081008
  Receipt Date: 20080929
  Transmission Date: 20090506
  Serious: Yes (Hospitalization)
  Sender: FDA-Public Use
  Company Number: US-ABBOTT-08P-163-0479107-00

PATIENT
  Sex: Male

DRUGS (3)
  1. DEPAKOTE [Suspect]
     Indication: DRUG USE FOR UNKNOWN INDICATION
  2. CLOZAPINE [Interacting]
     Indication: DRUG USE FOR UNKNOWN INDICATION
  3. CLOZAPINE [Interacting]
     Route: 048
     Dates: start: 20080828

REACTIONS (4)
  - AMMONIA INCREASED [None]
  - DRUG INTERACTION [None]
  - HYPERSENSITIVITY [None]
  - INFECTION [None]
